FAERS Safety Report 6171294-X (Version None)
Quarter: 2009Q2

REPORT INFORMATION
  Report Type: 
  Country: None (occurrence: None)
  Receive Date: 20090429
  Receipt Date: 20090417
  Transmission Date: 20091009
  Serious: Yes (Death, Life-Threatening, Hospitalization, Other)
  Sender: FDA-Public Use
  Company Number: DK-ASTRAZENECA-2009SE01239

PATIENT
  Age: 284 Day
  Sex: Female
  Weight: 10 kg

DRUGS (3)
  1. SPIROCORT [Suspect]
     Indication: ASTHMA
     Route: 055
     Dates: start: 20081115
  2. SPIROCORT [Suspect]
     Route: 055
     Dates: start: 20090213
  3. AIROMIR [Suspect]
     Indication: ASTHMA
     Dosage: 1 INHALATION 3 TIMES DAILY
     Dates: start: 20081115

REACTIONS (4)
  - ASTHMA [None]
  - CHOKING [None]
  - DEVICE OCCLUSION [None]
  - DRUG DOSE OMISSION [None]
